FAERS Safety Report 17487775 (Version 1)
Quarter: 2020Q1

REPORT INFORMATION
  Report Type: Spontaneous
  Country: US (occurrence: US)
  Receive Date: 20200219
  Receipt Date: 20200219
  Transmission Date: 20200409
  Serious: Yes (Life-Threatening, Other)
  Sender: FDA-Public Use
  Company Number: None

PATIENT
  Age: 51 Year
  Sex: Male
  Weight: 94.8 kg

DRUGS (3)
  1. ELAVIL [Concomitant]
     Active Substance: AMITRIPTYLINE HYDROCHLORIDE
  2. BENADRILL [Concomitant]
  3. KLONOPIN [Suspect]
     Active Substance: CLONAZEPAM
     Indication: EPILEPSY
     Dosage: ?          QUANTITY:4 DF DOSAGE FORM;?
     Route: 048
     Dates: start: 19980505, end: 20200209

REACTIONS (2)
  - Suspected product quality issue [None]
  - Seizure [None]

NARRATIVE: CASE EVENT DATE: 20180826
